FAERS Safety Report 5863609-4 (Version None)
Quarter: 2008Q3

REPORT INFORMATION
  Report Type: 
  Country: None (occurrence: None)
  Receive Date: 20080828
  Receipt Date: 20080818
  Transmission Date: 20090109
  Serious: Yes (Hospitalization)
  Sender: FDA-Public Use
  Company Number: DE-PFIZER INC-2008058150

PATIENT
  Sex: Female
  Weight: 69 kg

DRUGS (2)
  1. SU-011,248 [Suspect]
     Indication: BREAST CANCER
     Route: 048
  2. DICLOFENAC [Concomitant]
     Route: 048

REACTIONS (1)
  - MALLORY-WEISS SYNDROME [None]
